FAERS Safety Report 6667765-X (Version None)
Quarter: 2010Q2

REPORT INFORMATION
  Report Type: 
  Country: None (occurrence: None)
  Receive Date: 20100405
  Receipt Date: 20100325
  Transmission Date: 20101027
  Serious: Yes (Other)
  Sender: FDA-Public Use
  Company Number: US-JNJFOC-20100308112

PATIENT
  Sex: Female
  Weight: 68.04 kg

DRUGS (3)
  1. ORTHO TRI-CYCLEN LO [Suspect]
     Indication: ACNE
     Route: 048
  2. DOXYCYCLINE [Concomitant]
     Indication: ACNE
     Route: 048
  3. ZOLOFT [Concomitant]
     Indication: DEPRESSION
     Route: 048

REACTIONS (9)
  - ABDOMINAL DISTENSION [None]
  - ABDOMINAL PAIN UPPER [None]
  - CHILLS [None]
  - FLUID RETENTION [None]
  - HEPATOMEGALY [None]
  - OFF LABEL USE [None]
  - PYREXIA [None]
  - RENAL PAIN [None]
  - TREMOR [None]
